FAERS Safety Report 7141198-4 (Version None)
Quarter: 2010Q4

REPORT INFORMATION
  Report Type: 
  Country: None (occurrence: None)
  Receive Date: 20101203
  Receipt Date: 20101203
  Transmission Date: 20110411
  Serious: Yes (Life-Threatening)
  Sender: FDA-Public Use
  Company Number: None

PATIENT
  Age: 54 Year
  Sex: Male
  Weight: 81.6475 kg

DRUGS (2)
  1. PROPOXYPHENE HCL AND ACETAMINOPHEN [Suspect]
     Indication: MULTIPLE SCLEROSIS
     Dosage: 40 1 OR 2 EVERY 4-6 H
     Dates: start: 20100601, end: 20101129
  2. PROPOXYPHENE HCL AND ACETAMINOPHEN [Suspect]
     Indication: PAIN
     Dosage: 40 1 OR 2 EVERY 4-6 H
     Dates: start: 20100601, end: 20101129

REACTIONS (5)
  - CHEST PAIN [None]
  - DYSPNOEA [None]
  - PAIN [None]
  - PALPITATIONS [None]
  - PRODUCT QUALITY ISSUE [None]
